FAERS Safety Report 23265457 (Version 1)
Quarter: 2023Q4

REPORT INFORMATION
  Report Type: Spontaneous
  Country: GB (occurrence: GB)
  Receive Date: 20231206
  Receipt Date: 20231206
  Transmission Date: 20240110
  Serious: Yes (Other)
  Sender: FDA-Public Use
  Company Number: GB-MHRA-MED-202311231304377200-MPDHW

PATIENT
  Age: 46 Year
  Sex: Male

DRUGS (1)
  1. DOXAZOSIN [Suspect]
     Active Substance: DOXAZOSIN MESYLATE
     Indication: Renal hypertension
     Dosage: UNK UNK, ONCE A DAY (2MG ONCE A DAY)
     Route: 065
     Dates: start: 20231010, end: 20231107

REACTIONS (2)
  - Headache [Unknown]
  - Palpitations [Unknown]
